FAERS Safety Report 15309307 (Version 1)
Quarter: 2018Q3

REPORT INFORMATION
  Report Type: Spontaneous
  Country: GB (occurrence: GB)
  Receive Date: 20180811
  Receipt Date: 20180811
  Transmission Date: 20181010
  Serious: Yes (Disabling)
  Sender: FDA-Public Use
  Company Number: None

PATIENT
  Age: 36 Year
  Sex: Female
  Weight: 45.9 kg

DRUGS (6)
  1. ZINC. [Concomitant]
     Active Substance: ZINC
  2. VALERIAN [Concomitant]
     Active Substance: VALERIAN
  3. BOTOX [Suspect]
     Active Substance: ONABOTULINUMTOXINA
     Indication: TEMPOROMANDIBULAR JOINT SYNDROME
     Dosage: ?          OTHER STRENGTH:UNITS;OTHER FREQUENCY:INJECTED ONCE;?
     Route: 030
     Dates: start: 20180618, end: 20180618
  4. YASMIN [Concomitant]
     Active Substance: DROSPIRENONE\ETHINYL ESTRADIOL
  5. MAGNESIUM [Concomitant]
     Active Substance: MAGNESIUM
  6. VITAMIN B COMPLEX [Concomitant]
     Active Substance: CYANOCOBALAMIN\DEXPANTHENOL\NIACINAMIDE\PYRIDOXINE HYDROCHLORIDE\RIBOFLAVIN 5^-PHOSPHATE SODIUM\THIAMINE HYDROCHLORIDE\VITAMIN B COMPLEX

REACTIONS (30)
  - Feeling hot [None]
  - Rhinorrhoea [None]
  - Diarrhoea [None]
  - Paraesthesia [None]
  - Alopecia [None]
  - Weight decreased [None]
  - Dysphagia [None]
  - Muscular weakness [None]
  - Palpitations [None]
  - Decreased appetite [None]
  - Feeling abnormal [None]
  - Disturbance in attention [None]
  - Dyspnoea [None]
  - Amnesia [None]
  - Burning sensation [None]
  - Hyperventilation [None]
  - Anxiety [None]
  - Oropharyngeal pain [None]
  - Nausea [None]
  - Muscle atrophy [None]
  - Depression [None]
  - Night sweats [None]
  - Fatigue [None]
  - Temperature regulation disorder [None]
  - Facial pain [None]
  - Heart rate increased [None]
  - Suicidal ideation [None]
  - Insomnia [None]
  - Hypopnoea [None]
  - Dry throat [None]

NARRATIVE: CASE EVENT DATE: 20180625
